FAERS Safety Report 10725130 (Version 6)
Quarter: 2015Q3

REPORT INFORMATION
  Report Type: Report from Study
  Country: IT (occurrence: IT)
  Receive Date: 20150120
  Receipt Date: 20150824
  Transmission Date: 20151125
  Serious: Yes (Life-Threatening, Hospitalization)
  Sender: FDA-Public Use
  Company Number: IT-EXELIXIS-XL18415005101

PATIENT
  Age: 60 Year
  Sex: Male
  Weight: 93 kg

DRUGS (6)
  1. MYCOSTATIN [Concomitant]
     Active Substance: NYSTATIN
  2. AUREOMICINA [Concomitant]
  3. CARDIRENE [Concomitant]
     Active Substance: ASPIRIN DL-LYSINE
  4. XL184 [Suspect]
     Active Substance: CABOZANTINIB
     Indication: HEPATOCELLULAR CARCINOMA
     Dosage: 60 MG, QD
     Route: 048
     Dates: start: 20141209, end: 20150104
  5. TRANSTEC [Concomitant]
     Active Substance: BUPRENORPHINE
  6. HUMALOG [Concomitant]
     Active Substance: INSULIN LISPRO

REACTIONS (6)
  - Scrotal pain [Recovered/Resolved]
  - Intestinal anastomosis complication [Recovered/Resolved]
  - Proctalgia [Recovered/Resolved]
  - Peritonitis [Recovered/Resolved]
  - Dehydration [Recovered/Resolved]
  - Large intestine perforation [Recovered/Resolved]

NARRATIVE: CASE EVENT DATE: 20141229
